FAERS Safety Report 5491477-1 (Version None)
Quarter: 2007Q4

REPORT INFORMATION
  Report Type: 
  Country: None (occurrence: None)
  Receive Date: 20071022
  Receipt Date: 20071010
  Transmission Date: 20080405
  Serious: Yes (Hospitalization, Other)
  Sender: FDA-Public Use
  Company Number: PHHO2006JP10208

PATIENT
  Age: 28 Year
  Sex: Male
  Weight: 53 kg

DRUGS (17)
  1. AMN107 [Suspect]
     Indication: CHRONIC MYELOID LEUKAEMIA
     Dosage: 400 MG, BID
     Route: 048
     Dates: start: 20060509, end: 20060619
  2. AMN107 [Suspect]
     Dosage: 400 MG
     Route: 048
     Dates: start: 20060620, end: 20060703
  3. AMN107 [Suspect]
     Dosage: 400 MG, QD
     Route: 048
     Dates: start: 20060718, end: 20060721
  4. AMN107 [Suspect]
     Dosage: 400 MG, BID
     Route: 048
     Dates: start: 20060704, end: 20060717
  5. LOXONIN [Concomitant]
     Indication: PYREXIA
  6. SELBEX [Concomitant]
     Indication: STOMACH DISCOMFORT
  7. NEGMIN [Concomitant]
     Indication: STOMATITIS
  8. URSO 250 [Concomitant]
     Indication: BLOOD BILIRUBIN INCREASED
  9. FLOMOX [Concomitant]
     Indication: NASOPHARYNGITIS
  10. DASEN [Concomitant]
     Indication: NASOPHARYNGITIS
  11. ASVERIN [Concomitant]
     Indication: NASOPHARYNGITIS
  12. HACHIAZULE [Concomitant]
     Indication: MOUTH ULCERATION
  13. INDOMETHACIN [Concomitant]
     Indication: ORAL PAIN
  14. LEVOFLOXACIN [Concomitant]
     Indication: NASOPHARYNGITIS
  15. VEEN D [Concomitant]
     Indication: EATING DISORDER
  16. SOLITA T [Concomitant]
     Indication: EATING DISORDER
  17. NEORAL [Suspect]
     Indication: UNRELATED DONOR BONE MARROW TRANSPLANTATION THERAPY
     Route: 065

REACTIONS (11)
  - ALANINE AMINOTRANSFERASE INCREASED [None]
  - ASPARTATE AMINOTRANSFERASE INCREASED [None]
  - BRONCHITIS [None]
  - EATING DISORDER [None]
  - HEPATITIS VIRAL [None]
  - HERPES SIMPLEX SEROLOGY POSITIVE [None]
  - LIVER DISORDER [None]
  - MOUTH ULCERATION [None]
  - ORAL PAIN [None]
  - PYREXIA [None]
  - STOMATITIS [None]
